FAERS Safety Report 8391679-0 (Version None)
Quarter: 2012Q2

REPORT INFORMATION
  Report Type: 
  Country: None (occurrence: None)
  Receive Date: 20120529
  Receipt Date: 20120517
  Transmission Date: 20120825
  Serious: Yes (Hospitalization)
  Sender: FDA-Public Use
  Company Number: US-ASTRAZENECA-2012SE32194

PATIENT
  Age: 766 Month
  Sex: Female
  Weight: 77.1 kg

DRUGS (5)
  1. TOPROL-XL [Suspect]
     Route: 048
  2. TOPROL-XL [Suspect]
     Route: 048
     Dates: start: 20050101
  3. LOPID [Concomitant]
  4. LIPITOR [Concomitant]
  5. PLAVIX [Concomitant]

REACTIONS (6)
  - VOMITING [None]
  - DIZZINESS [None]
  - CHEST DISCOMFORT [None]
  - NAUSEA [None]
  - WEIGHT INCREASED [None]
  - MENIERE'S DISEASE [None]
